FAERS Safety Report 9505554 (Version 1)
Quarter: 2013Q1

REPORT INFORMATION
  Report Type: Spontaneous
  Country: US (occurrence: None)
  Receive Date: 20130220
  Receipt Date: 20130220
  Transmission Date: 20140127
  Serious: No
  Sender: FDA-Public Use
  Company Number: 1000041543

PATIENT
  Age: 68 Year
  Sex: Male

DRUGS (6)
  1. VIIBYRD (VILAZODONE HYDROCHLORIDE) [Suspect]
     Indication: DEPRESSION
     Dosage: 10 MG (10 MG, 1 IN 1 D), ORAL
     Route: 048
     Dates: start: 20130101, end: 20130107
  2. FLOMAX (TAMSULOSIN HYDROCHLORIDE) (TAMSULOSIN HYDROCHLORIDE) [Concomitant]
  3. PROSCAR (FINASTERIDE) (FINASTERIDE) [Concomitant]
  4. PRILOSEC (OMEPRAZOLE) (OMEPRAZOLE) [Concomitant]
  5. ASPIRIN (ACETYLSALICYLIC ACID (ACETYLSALICYLIC ACID) [Concomitant]
  6. IBUPROFEN (IBUPROFEN) (IBUPROFEN) [Concomitant]

REACTIONS (6)
  - Feeling abnormal [None]
  - Headache [None]
  - Depression [None]
  - Nausea [None]
  - Insomnia [None]
  - Somnolence [None]
